FAERS Safety Report 7144951-6 (Version None)
Quarter: 2010Q4

REPORT INFORMATION
  Report Type: 
  Country: None (occurrence: None)
  Receive Date: 20101208
  Receipt Date: 20101129
  Transmission Date: 20110411
  Serious: Yes (Death)
  Sender: FDA-Public Use
  Company Number: LT-JNJFOC-20101202781

PATIENT
  Age: 50 Year
  Sex: Female

DRUGS (2)
  1. RISPOLEPT [Suspect]
     Indication: SCHIZOPHRENIA
     Route: 048
  2. SEROQUEL [Suspect]
     Indication: SCHIZOPHRENIA
     Route: 065

REACTIONS (5)
  - COMA [None]
  - COMPLETED SUICIDE [None]
  - CRUSH SYNDROME [None]
  - MULTIPLE DRUG OVERDOSE INTENTIONAL [None]
  - RENAL FAILURE [None]
